FAERS Safety Report 15804755 (Version 2)
Quarter: 2019Q1

REPORT INFORMATION
  Report Type: Report from Study
  Country: US (occurrence: US)
  Receive Date: 20190110
  Receipt Date: 20190225
  Transmission Date: 20190417
  Serious: Yes (Death)
  Sender: FDA-Public Use
  Company Number: US-BEH-2019098164

PATIENT

DRUGS (1)
  1. HUMAN FACTOR VIII (GENERIC) [Suspect]
     Active Substance: ANTIHEMOPHILIC FACTOR HUMAN
     Indication: FACTOR VIII DEFICIENCY
     Dosage: UNK UNK, QD
     Route: 065

REACTIONS (1)
  - Cerebral thrombosis [Fatal]
